FAERS Safety Report 13019036 (Version 1)
Quarter: 2016Q4

REPORT INFORMATION
  Report Type: Spontaneous
  Country: US (occurrence: US)
  Receive Date: 20161212
  Receipt Date: 20161212
  Transmission Date: 20170207
  Serious: No
  Sender: FDA-Public Use
  Company Number: US-RECKITT BENCKISER HEALTHCARE INT LIMITED-RB-85087-2016

PATIENT
  Age: 40 Year
  Sex: Female

DRUGS (1)
  1. DELSYM [Suspect]
     Active Substance: DEXTROMETHORPHAN
     Indication: COUGH
     Dosage: 1 DOSE AT 2:00 AND 2 HOURS LATER 0.5 DOSE AT 04:00
     Route: 065
     Dates: start: 20160411

REACTIONS (1)
  - Drug ineffective [Not Recovered/Not Resolved]
